FAERS Safety Report 14945899 (Version 5)
Quarter: 2018Q3

REPORT INFORMATION
  Report Type: Report from Study
  Country: ES (occurrence: ES)
  Receive Date: 20180529
  Receipt Date: 20180813
  Transmission Date: 20181010
  Serious: Yes (Hospitalization)
  Sender: FDA-Public Use
  Company Number: ES-ROCHE-2126223

PATIENT
  Age: 70 Year
  Sex: Female
  Weight: 65.9 kg

DRUGS (6)
  1. ATEZOLIZUMAB. [Suspect]
     Active Substance: ATEZOLIZUMAB
     Indication: MALIGNANT MELANOMA
     Dosage: (AS PER PROTOCOL: ATEZOLIZUMAB 840 MG AS IV INFUSION ONCE IN EVERY 2 WEEKS)?MOST RECENT DOSE OF ATEZ
     Route: 042
     Dates: start: 20180509
  2. COBIMETINIB. [Suspect]
     Active Substance: COBIMETINIB
     Indication: MALIGNANT MELANOMA
     Dosage: (AS PER PROTOCOL: COBIMETINIB 60 MG TABLETS ORALLY ONCE DAILY ON A 21 DAYS ON, 7 DAYS OFF SCHEDULE).
     Route: 048
     Dates: start: 20180509
  3. MYCOSTATIN [Concomitant]
     Active Substance: NYSTATIN
     Indication: STOMATITIS
     Route: 048
     Dates: start: 20180517
  4. ROSUVASTATIN. [Concomitant]
     Active Substance: ROSUVASTATIN
     Indication: DYSLIPIDAEMIA
     Route: 048
     Dates: start: 20160922
  5. BETAMETHASONE DIPROPIONATE. [Concomitant]
     Active Substance: BETAMETHASONE DIPROPIONATE
     Indication: DERMATITIS ACNEIFORM
     Route: 061
     Dates: start: 20180521
  6. LORATADINE. [Concomitant]
     Active Substance: LORATADINE
     Indication: DERMATITIS ACNEIFORM
     Route: 048
     Dates: start: 20180521

REACTIONS (2)
  - Diarrhoea [Recovered/Resolved]
  - Diarrhoea infectious [Recovered/Resolved]

NARRATIVE: CASE EVENT DATE: 20180510
